APPROVED DRUG PRODUCT: LYGEN
Active Ingredient: CHLORDIAZEPOXIDE HYDROCHLORIDE
Strength: 5MG
Dosage Form/Route: CAPSULE;ORAL
Application: A085107 | Product #001
Applicant: ALRA LABORATORIES INC
Approved: Approved Prior to Jan 1, 1982 | RLD: No | RS: No | Type: DISCN